FAERS Safety Report 10232870 (Version 1)
Quarter: 2014Q2

REPORT INFORMATION
  Report Type: Spontaneous
  Country: GB (occurrence: None)
  Receive Date: 20140610
  Receipt Date: 20140610
  Transmission Date: 20141212
  Serious: Yes (Life-Threatening)
  Sender: FDA-Public Use
  Company Number: AUR-APL-2014-06196

PATIENT
  Age: 66 Year
  Sex: Male

DRUGS (3)
  1. AMOXICLLIN+CLAVULANIC ACID (CLAVULANIC ACID, AMOXICILLIN) [Suspect]
     Indication: NEUTROPENIC SEPSIS
     Dosage: 1875 MG (625 MG, 3 IN 1 D), ORAL
     Route: 048
     Dates: start: 20140505, end: 20140515
  2. OXYCODONE (OXCODONE) [Concomitant]
  3. TAZOCIN (PIP/TAZO) [Concomitant]

REACTIONS (2)
  - Acute myeloid leukaemia [None]
  - Clostridium difficile colitis [None]
